FAERS Safety Report 21004943 (Version 2)
Quarter: 2022Q3

REPORT INFORMATION
  Report Type: Spontaneous
  Country: FR (occurrence: FR)
  Receive Date: 20220624
  Receipt Date: 20220929
  Transmission Date: 20221026
  Serious: Yes (Other)
  Sender: FDA-Public Use
  Company Number: FR-NOVARTISPH-NVSC2022FR141712

PATIENT
  Sex: Male

DRUGS (137)
  1. ZOPICLONE [Suspect]
     Active Substance: ZOPICLONE
     Indication: Product used for unknown indication
     Dosage: 7.5 MG, QD
     Route: 065
     Dates: start: 20201228
  2. ZOPICLONE [Suspect]
     Active Substance: ZOPICLONE
     Dosage: 7.5 MG, QD
     Route: 065
     Dates: start: 20210930
  3. ZOPICLONE [Suspect]
     Active Substance: ZOPICLONE
     Dosage: 7.5 MG, QD
     Route: 065
     Dates: start: 20220110
  4. ZOPICLONE [Suspect]
     Active Substance: ZOPICLONE
     Dosage: 7.5 MG, QD
     Route: 065
     Dates: start: 20220121
  5. ZOPICLONE [Suspect]
     Active Substance: ZOPICLONE
     Dosage: 7.5 MG, QD
     Route: 065
     Dates: start: 20220408
  6. CYAMEMAZINE [Suspect]
     Active Substance: CYAMEMAZINE
     Indication: Product used for unknown indication
     Dosage: 0.5 DOSAGE FORM, QD
     Route: 065
     Dates: start: 20171017
  7. CYAMEMAZINE [Suspect]
     Active Substance: CYAMEMAZINE
     Dosage: 25 MG, QD
     Route: 065
     Dates: start: 20180109
  8. CYAMEMAZINE [Suspect]
     Active Substance: CYAMEMAZINE
     Dosage: 25 MG, QD
     Route: 065
     Dates: start: 20180116
  9. CYAMEMAZINE [Suspect]
     Active Substance: CYAMEMAZINE
     Dosage: 25 MG, QD
     Route: 065
     Dates: start: 20180212
  10. CYAMEMAZINE [Suspect]
     Active Substance: CYAMEMAZINE
     Dosage: 25 MG, QD
     Route: 065
     Dates: start: 20180426
  11. CYAMEMAZINE [Suspect]
     Active Substance: CYAMEMAZINE
     Dosage: 20 MG, QD
     Route: 065
     Dates: start: 20180523
  12. CYAMEMAZINE [Suspect]
     Active Substance: CYAMEMAZINE
     Dosage: 25 MG, QD
     Route: 065
     Dates: start: 20180615
  13. CYAMEMAZINE [Suspect]
     Active Substance: CYAMEMAZINE
     Dosage: 25 MG, QD
     Route: 065
     Dates: start: 20180828
  14. CYAMEMAZINE [Suspect]
     Active Substance: CYAMEMAZINE
     Dosage: 25 MG, QD
     Route: 065
     Dates: start: 20180904
  15. CYAMEMAZINE [Suspect]
     Active Substance: CYAMEMAZINE
     Dosage: 25 MG, QD
     Route: 065
     Dates: start: 20181129
  16. CYAMEMAZINE [Suspect]
     Active Substance: CYAMEMAZINE
     Dosage: 25 MG, QD
     Route: 065
     Dates: start: 20190222
  17. CYAMEMAZINE [Suspect]
     Active Substance: CYAMEMAZINE
     Dosage: 25 MG, QD
     Route: 065
     Dates: start: 20190307
  18. CYAMEMAZINE [Suspect]
     Active Substance: CYAMEMAZINE
     Dosage: 25 MG, QD
     Route: 065
     Dates: start: 20190520
  19. CYAMEMAZINE [Suspect]
     Active Substance: CYAMEMAZINE
     Dosage: 25 MG, QD
     Route: 065
     Dates: start: 20190829
  20. CYAMEMAZINE [Suspect]
     Active Substance: CYAMEMAZINE
     Dosage: 25 MG, QD
     Route: 065
     Dates: start: 20191121
  21. CYAMEMAZINE [Suspect]
     Active Substance: CYAMEMAZINE
     Dosage: 25 MG, QD
     Route: 065
     Dates: start: 20200120
  22. CYAMEMAZINE [Suspect]
     Active Substance: CYAMEMAZINE
     Dosage: 25 MG, QD
     Route: 065
     Dates: start: 20200417
  23. CYAMEMAZINE [Suspect]
     Active Substance: CYAMEMAZINE
     Dosage: 25 MG, QD
     Route: 065
     Dates: start: 20200504
  24. CYAMEMAZINE [Suspect]
     Active Substance: CYAMEMAZINE
     Dosage: 25 MG, QD
     Route: 065
     Dates: start: 20200619
  25. CYAMEMAZINE [Suspect]
     Active Substance: CYAMEMAZINE
     Dosage: 25 MG, QD
     Route: 065
     Dates: start: 20200917
  26. CYAMEMAZINE [Suspect]
     Active Substance: CYAMEMAZINE
     Dosage: 25 MG, QD
     Route: 065
     Dates: start: 20201228
  27. CYAMEMAZINE [Suspect]
     Active Substance: CYAMEMAZINE
     Dosage: 30 DRP
     Route: 065
     Dates: start: 20210421
  28. CYAMEMAZINE [Suspect]
     Active Substance: CYAMEMAZINE
     Dosage: 25 MG, QD
     Route: 065
     Dates: start: 20210625
  29. CYAMEMAZINE [Suspect]
     Active Substance: CYAMEMAZINE
     Dosage: 25 MG, QD
     Route: 065
     Dates: start: 20210917
  30. CYAMEMAZINE [Suspect]
     Active Substance: CYAMEMAZINE
     Dosage: 25 MG, QD
     Route: 065
     Dates: start: 20210930
  31. CYAMEMAZINE [Suspect]
     Active Substance: CYAMEMAZINE
     Dosage: 25 MG, QD
     Route: 065
     Dates: start: 20220121
  32. CYAMEMAZINE [Suspect]
     Active Substance: CYAMEMAZINE
     Dosage: 25 MG, QD
     Route: 065
     Dates: start: 20220201
  33. CYAMEMAZINE [Suspect]
     Active Substance: CYAMEMAZINE
     Dosage: 25 MG, QD
     Route: 065
     Dates: start: 20220408
  34. CYAMEMAZINE [Suspect]
     Active Substance: CYAMEMAZINE
     Dosage: UNK
     Route: 065
  35. CYAMEMAZINE [Suspect]
     Active Substance: CYAMEMAZINE
     Dosage: 30 DROPS
     Route: 065
     Dates: start: 20210421
  36. AMITRIPTYLINE HYDROCHLORIDE [Suspect]
     Active Substance: AMITRIPTYLINE HYDROCHLORIDE
     Indication: Product used for unknown indication
     Dosage: 0.5 MG, QD
     Route: 065
     Dates: start: 20170104
  37. AMITRIPTYLINE HYDROCHLORIDE [Suspect]
     Active Substance: AMITRIPTYLINE HYDROCHLORIDE
     Dosage: 50 MG, QD
     Route: 065
     Dates: start: 20170320
  38. AMITRIPTYLINE HYDROCHLORIDE [Suspect]
     Active Substance: AMITRIPTYLINE HYDROCHLORIDE
     Dosage: 50 MG, QD
     Route: 065
     Dates: start: 20170330
  39. AMITRIPTYLINE HYDROCHLORIDE [Suspect]
     Active Substance: AMITRIPTYLINE HYDROCHLORIDE
     Dosage: 100 MG, QD
     Route: 065
     Dates: start: 20180220
  40. AMITRIPTYLINE HYDROCHLORIDE [Suspect]
     Active Substance: AMITRIPTYLINE HYDROCHLORIDE
     Dosage: 40 MG, QD
     Route: 065
     Dates: start: 20200818
  41. AMITRIPTYLINE HYDROCHLORIDE [Suspect]
     Active Substance: AMITRIPTYLINE HYDROCHLORIDE
     Dosage: UNK UNK, QD
     Route: 065
     Dates: start: 20200818
  42. AMITRIPTYLINE HYDROCHLORIDE [Suspect]
     Active Substance: AMITRIPTYLINE HYDROCHLORIDE
     Dosage: 30 DRP
     Route: 065
     Dates: start: 20201228
  43. AMITRIPTYLINE HYDROCHLORIDE [Suspect]
     Active Substance: AMITRIPTYLINE HYDROCHLORIDE
     Dosage: 40 MG, QD
     Route: 065
     Dates: start: 20201228
  44. AMITRIPTYLINE HYDROCHLORIDE [Suspect]
     Active Substance: AMITRIPTYLINE HYDROCHLORIDE
     Dosage: 30 DRP
     Route: 065
     Dates: start: 20220121
  45. AMITRIPTYLINE HYDROCHLORIDE [Suspect]
     Active Substance: AMITRIPTYLINE HYDROCHLORIDE
     Dosage: 30 DRP
     Route: 065
     Dates: start: 20220201
  46. AMITRIPTYLINE HYDROCHLORIDE [Suspect]
     Active Substance: AMITRIPTYLINE HYDROCHLORIDE
     Dosage: 30 DRP
     Route: 065
     Dates: start: 20220408
  47. AMITRIPTYLINE HYDROCHLORIDE [Suspect]
     Active Substance: AMITRIPTYLINE HYDROCHLORIDE
     Dosage: 25 MG, QD
     Route: 065
  48. AMITRIPTYLINE HYDROCHLORIDE [Suspect]
     Active Substance: AMITRIPTYLINE HYDROCHLORIDE
     Dosage: 50 MG, QD
     Route: 065
  49. AMITRIPTYLINE HYDROCHLORIDE [Suspect]
     Active Substance: AMITRIPTYLINE HYDROCHLORIDE
     Dosage: 50 MG, QD
     Route: 065
  50. CYMBALTA [Suspect]
     Active Substance: DULOXETINE HYDROCHLORIDE
     Indication: Product used for unknown indication
     Dosage: 30 G, QD
     Route: 065
     Dates: start: 20170418
  51. CYMBALTA [Suspect]
     Active Substance: DULOXETINE HYDROCHLORIDE
     Dosage: 60 MG, QD
     Route: 065
     Dates: start: 20170522
  52. CYMBALTA [Suspect]
     Active Substance: DULOXETINE HYDROCHLORIDE
     Dosage: 60 MG, QD
     Route: 065
     Dates: start: 20170904
  53. CYMBALTA [Suspect]
     Active Substance: DULOXETINE HYDROCHLORIDE
     Dosage: 120 MG, QD
     Route: 065
     Dates: start: 20180109
  54. CYMBALTA [Suspect]
     Active Substance: DULOXETINE HYDROCHLORIDE
     Dosage: 120 MG, QD
     Route: 065
     Dates: start: 20180116
  55. CYMBALTA [Suspect]
     Active Substance: DULOXETINE HYDROCHLORIDE
     Dosage: 120 MG, QD
     Route: 065
     Dates: start: 20180828
  56. CYMBALTA [Suspect]
     Active Substance: DULOXETINE HYDROCHLORIDE
     Dosage: 120 MG, QD
     Route: 065
     Dates: start: 20180904
  57. CYMBALTA [Suspect]
     Active Substance: DULOXETINE HYDROCHLORIDE
     Dosage: 120 MG, QD
     Route: 065
     Dates: start: 20181129
  58. CYMBALTA [Suspect]
     Active Substance: DULOXETINE HYDROCHLORIDE
     Dosage: 120 MG, QD
     Route: 065
     Dates: start: 20190903
  59. CYMBALTA [Suspect]
     Active Substance: DULOXETINE HYDROCHLORIDE
     Dosage: 120 MG, QD
     Route: 065
     Dates: start: 20200120
  60. CYMBALTA [Suspect]
     Active Substance: DULOXETINE HYDROCHLORIDE
     Dosage: 120 MG
     Route: 065
     Dates: start: 20200417
  61. CYMBALTA [Suspect]
     Active Substance: DULOXETINE HYDROCHLORIDE
     Dosage: 120 MG
     Route: 065
     Dates: start: 20200504
  62. CYMBALTA [Suspect]
     Active Substance: DULOXETINE HYDROCHLORIDE
     Dosage: 120 MG
     Route: 065
     Dates: start: 20200619
  63. CYMBALTA [Suspect]
     Active Substance: DULOXETINE HYDROCHLORIDE
     Dosage: 120 MG, QD
     Route: 065
     Dates: start: 20200917
  64. CYMBALTA [Suspect]
     Active Substance: DULOXETINE HYDROCHLORIDE
     Dosage: 120 MG, QD
     Route: 065
     Dates: start: 20210421
  65. CYMBALTA [Suspect]
     Active Substance: DULOXETINE HYDROCHLORIDE
     Dosage: 60 MG, QD
     Route: 065
     Dates: start: 20210625
  66. CYMBALTA [Suspect]
     Active Substance: DULOXETINE HYDROCHLORIDE
     Dosage: 120 MG, QD
     Route: 065
     Dates: start: 20210917
  67. CYMBALTA [Suspect]
     Active Substance: DULOXETINE HYDROCHLORIDE
     Dosage: 120 MG, QD
     Route: 065
     Dates: start: 20220201
  68. CYMBALTA [Suspect]
     Active Substance: DULOXETINE HYDROCHLORIDE
     Dosage: 120 MG, QD
     Route: 065
     Dates: start: 20220408
  69. CYMBALTA [Suspect]
     Active Substance: DULOXETINE HYDROCHLORIDE
     Dosage: 120 MG, QD
     Route: 065
     Dates: start: 20180523
  70. CYMBALTA [Suspect]
     Active Substance: DULOXETINE HYDROCHLORIDE
     Dosage: 120 MG, QD
     Route: 065
     Dates: start: 20191121
  71. CYMBALTA [Suspect]
     Active Substance: DULOXETINE HYDROCHLORIDE
     Dosage: 120 MG, QD
     Route: 065
     Dates: start: 20210930
  72. CYMBALTA [Suspect]
     Active Substance: DULOXETINE HYDROCHLORIDE
     Dosage: 120 MG, QD
     Route: 065
     Dates: start: 20220121
  73. CYMBALTA [Suspect]
     Active Substance: DULOXETINE HYDROCHLORIDE
     Dosage: 120 MG, QD
     Route: 065
     Dates: start: 20180426
  74. CYMBALTA [Suspect]
     Active Substance: DULOXETINE HYDROCHLORIDE
     Dosage: 120 MG, QD
     Route: 065
     Dates: start: 20180615
  75. CYMBALTA [Suspect]
     Active Substance: DULOXETINE HYDROCHLORIDE
     Dosage: 60 MG, QD
     Route: 065
     Dates: start: 20171017
  76. CYMBALTA [Suspect]
     Active Substance: DULOXETINE HYDROCHLORIDE
     Dosage: 120 MG, QD
     Route: 065
     Dates: start: 20190222
  77. CYMBALTA [Suspect]
     Active Substance: DULOXETINE HYDROCHLORIDE
     Dosage: 120 MG, QD
     Route: 065
     Dates: start: 20180220
  78. CYMBALTA [Suspect]
     Active Substance: DULOXETINE HYDROCHLORIDE
     Dosage: 120 MG, QD
     Route: 065
     Dates: start: 20181129
  79. CYMBALTA [Suspect]
     Active Substance: DULOXETINE HYDROCHLORIDE
     Dosage: 120 MG, QD
     Route: 065
     Dates: start: 20190307
  80. CYMBALTA [Suspect]
     Active Substance: DULOXETINE HYDROCHLORIDE
     Dosage: 120 MG, QD
     Route: 065
     Dates: start: 20180420
  81. CYMBALTA [Suspect]
     Active Substance: DULOXETINE HYDROCHLORIDE
     Dosage: 120 MG, QD
     Route: 065
     Dates: start: 20190520
  82. CYMBALTA [Suspect]
     Active Substance: DULOXETINE HYDROCHLORIDE
     Dosage: 120 MG, QD
     Route: 065
     Dates: start: 20190829
  83. CYMBALTA [Suspect]
     Active Substance: DULOXETINE HYDROCHLORIDE
     Dosage: 120 MG, QD
     Route: 065
     Dates: start: 20201228
  84. CYMBALTA [Suspect]
     Active Substance: DULOXETINE HYDROCHLORIDE
     Dosage: 1 DOSAGE FORM, QD
     Route: 065
     Dates: start: 20170810
  85. CYMBALTA [Suspect]
     Active Substance: DULOXETINE HYDROCHLORIDE
     Dosage: 120 MG, QD
     Route: 065
     Dates: start: 20180212
  86. PROPRANOLOL [Suspect]
     Active Substance: PROPRANOLOL HYDROCHLORIDE
     Indication: Product used for unknown indication
     Dosage: 40 MG, QD
     Route: 065
     Dates: start: 20201228
  87. PROPRANOLOL [Suspect]
     Active Substance: PROPRANOLOL HYDROCHLORIDE
     Dosage: 40 MG, QD
     Route: 065
     Dates: start: 20210917
  88. PROPRANOLOL [Suspect]
     Active Substance: PROPRANOLOL HYDROCHLORIDE
     Dosage: 40 MG, QD
     Route: 065
     Dates: start: 20220221
  89. TOPIRAMATE [Suspect]
     Active Substance: TOPIRAMATE
     Indication: Product used for unknown indication
     Dosage: 15 MG, BID
     Route: 065
     Dates: start: 20200120
  90. INDOMETHACIN [Concomitant]
     Active Substance: INDOMETHACIN
     Indication: Product used for unknown indication
     Dosage: 150 MG, QD, 75 MG, BID
     Route: 065
  91. KETOPROFEN [Concomitant]
     Active Substance: KETOPROFEN
     Indication: Product used for unknown indication
     Dosage: 100 MG, QD, 50 MG, BID
     Route: 065
  92. AMOXICILLIN AND CLAVULANATE POTASSIUM [Concomitant]
     Active Substance: AMOXICILLIN\CLAVULANATE POTASSIUM
     Indication: Product used for unknown indication
     Dosage: 2 DOSAGE FORM, QD, 1 DOSAGE FORM, BID
     Route: 065
     Dates: start: 20160616
  93. DOLIPRANE [Concomitant]
     Active Substance: ACETAMINOPHEN
     Indication: Product used for unknown indication
     Dosage: 8 DOSAGE FORM, QD, 2 DOSAGE FORM, QID
     Route: 065
     Dates: start: 20160622
  94. DOLIPRANE [Concomitant]
     Active Substance: ACETAMINOPHEN
     Dosage: 4 G, QD, 1 G, QID
     Route: 065
     Dates: start: 20200818
  95. DOLIPRANE [Concomitant]
     Active Substance: ACETAMINOPHEN
     Dosage: 1 G, QD, 1 G, QD
     Route: 065
     Dates: start: 20200917
  96. DOLIPRANE [Concomitant]
     Active Substance: ACETAMINOPHEN
     Dosage: 4 G, QD, 1 G, QID
     Route: 065
     Dates: start: 20201228
  97. DOLIPRANE [Concomitant]
     Active Substance: ACETAMINOPHEN
     Dosage: 4 G, QD, 1 G, QID
     Route: 065
     Dates: start: 20210421
  98. DOLIPRANE [Concomitant]
     Active Substance: ACETAMINOPHEN
     Dosage: 4 G, QD, 1 G, QID
     Route: 065
     Dates: start: 20210917
  99. DOLIPRANE [Concomitant]
     Active Substance: ACETAMINOPHEN
     Dosage: 4 G, QD, 1 G, QID
     Route: 065
     Dates: start: 20220201
  100. SOLUPRED [Concomitant]
     Indication: Product used for unknown indication
     Dosage: UNK, QW, UNK DOSAGE FORM
     Route: 065
     Dates: start: 20160617
  101. TRAMADOL HYDROCHLORIDE [Concomitant]
     Active Substance: TRAMADOL HYDROCHLORIDE
     Indication: Product used for unknown indication
     Dosage: 1 DOSAGE FORM, QD
     Route: 065
     Dates: start: 20160704
  102. TRAMADOL HYDROCHLORIDE [Concomitant]
     Active Substance: TRAMADOL HYDROCHLORIDE
     Dosage: UNK
     Route: 065
     Dates: start: 20160722
  103. TRAMADOL HYDROCHLORIDE [Concomitant]
     Active Substance: TRAMADOL HYDROCHLORIDE
     Dosage: UNK
     Route: 065
     Dates: start: 20160818
  104. TRAMADOL HYDROCHLORIDE [Concomitant]
     Active Substance: TRAMADOL HYDROCHLORIDE
     Dosage: UNK
     Route: 065
     Dates: start: 20161004
  105. TRAMADOL HYDROCHLORIDE [Concomitant]
     Active Substance: TRAMADOL HYDROCHLORIDE
     Dosage: UNK
     Route: 065
     Dates: start: 20170529
  106. AUGMENTIN [Concomitant]
     Active Substance: AMOXICILLIN\CLAVULANATE POTASSIUM
     Indication: Product used for unknown indication
     Dosage: 3 DOSAGE FORM, QD, 1 DOSAGE FORM, TID
     Route: 065
     Dates: start: 20160622
  107. SACCHAROMYCES CEREVISIAE [Concomitant]
     Active Substance: SACCHAROMYCES CEREVISIAE
     Indication: Product used for unknown indication
     Dosage: UNK
     Route: 065
     Dates: start: 20160622
  108. DAFALGAN [Concomitant]
     Active Substance: ACETAMINOPHEN
     Indication: Product used for unknown indication
     Dosage: 3 G, QD, 1 G, TID
     Route: 065
     Dates: start: 20160704
  109. DAFALGAN [Concomitant]
     Active Substance: ACETAMINOPHEN
     Dosage: 3 G, QD, 1 G, TID
     Route: 065
     Dates: start: 20160722
  110. DAFALGAN [Concomitant]
     Active Substance: ACETAMINOPHEN
     Dosage: 3 G, QD, 1 G, TID
     Route: 065
     Dates: start: 20160818
  111. DAFALGAN [Concomitant]
     Active Substance: ACETAMINOPHEN
     Dosage: 3 G, QD, 1 G, TID
     Route: 065
     Dates: start: 20170529
  112. ACETAMINOPHEN\CODEINE PHOSPHATE [Concomitant]
     Active Substance: ACETAMINOPHEN\CODEINE PHOSPHATE
     Indication: Product used for unknown indication
     Dosage: UNK
     Route: 065
     Dates: start: 20160622
  113. ACUPAN [Concomitant]
     Active Substance: NEFOPAM HYDROCHLORIDE
     Indication: Product used for unknown indication
     Dosage: 60 MG, QD, 20 MG, TID
     Route: 065
     Dates: start: 20170904
  114. ACUPAN [Concomitant]
     Active Substance: NEFOPAM HYDROCHLORIDE
     Dosage: 60 MG, QD, 20 MG, TID
     Route: 065
     Dates: start: 20180109
  115. ACUPAN [Concomitant]
     Active Substance: NEFOPAM HYDROCHLORIDE
     Dosage: 60 MG, QD, 20 MG, TID
     Route: 065
     Dates: start: 20180212
  116. ACUPAN [Concomitant]
     Active Substance: NEFOPAM HYDROCHLORIDE
     Dosage: 60 MG, QD, 20 MG, TID
     Route: 065
     Dates: start: 20180426
  117. ACUPAN [Concomitant]
     Active Substance: NEFOPAM HYDROCHLORIDE
     Dosage: 60 MG, QD, 20 MG, TID
     Route: 065
     Dates: start: 20180523
  118. ACUPAN [Concomitant]
     Active Substance: NEFOPAM HYDROCHLORIDE
     Dosage: 60 MG, QD, 20 MG, TID
     Route: 065
     Dates: start: 20180828
  119. ACUPAN [Concomitant]
     Active Substance: NEFOPAM HYDROCHLORIDE
     Dosage: 60 MG, QD, 20 MG, TID
     Route: 065
     Dates: start: 20180904
  120. ACUPAN [Concomitant]
     Active Substance: NEFOPAM HYDROCHLORIDE
     Dosage: 60 MG, QD, 20 MG, TID
     Route: 065
     Dates: start: 20181129
  121. ACUPAN [Concomitant]
     Active Substance: NEFOPAM HYDROCHLORIDE
     Dosage: 60 MG, QD, 20 MG, TID
     Route: 065
     Dates: start: 20190307
  122. ACUPAN [Concomitant]
     Active Substance: NEFOPAM HYDROCHLORIDE
     Dosage: 60 MG, QD, 20 MG, TID
     Route: 065
     Dates: start: 20190520
  123. ACUPAN [Concomitant]
     Active Substance: NEFOPAM HYDROCHLORIDE
     Dosage: 60 MG, QD, 20 MG, TID
     Route: 065
     Dates: start: 20190903
  124. ACUPAN [Concomitant]
     Active Substance: NEFOPAM HYDROCHLORIDE
     Dosage: 60 MG, QD, 20 MG, TID
     Route: 065
     Dates: start: 20200120
  125. ACUPAN [Concomitant]
     Active Substance: NEFOPAM HYDROCHLORIDE
     Dosage: 60 MG, QD, 20 MG, TID
     Route: 065
     Dates: start: 20200504
  126. ACUPAN [Concomitant]
     Active Substance: NEFOPAM HYDROCHLORIDE
     Dosage: 60 MG, QD, 20 MG, TID
     Route: 065
     Dates: start: 20200917
  127. PIROXICAM BETADEX [Concomitant]
     Active Substance: PIROXICAM BETADEX
     Indication: Product used for unknown indication
     Dosage: 1 DOSAGE FORM, QD
     Route: 065
     Dates: start: 20160704
  128. PIROXICAM BETADEX [Concomitant]
     Active Substance: PIROXICAM BETADEX
     Dosage: 1 DOSAGE FORM, QD
     Route: 065
     Dates: start: 20160722
  129. ACETAMINOPHEN [Concomitant]
     Active Substance: ACETAMINOPHEN
     Indication: Product used for unknown indication
     Dosage: UNK
     Route: 065
     Dates: start: 20160616
  130. TRAMADOL [Concomitant]
     Active Substance: TRAMADOL
     Indication: Product used for unknown indication
     Dosage: 50 MG, QD
     Route: 065
     Dates: start: 20160616, end: 2016
  131. TRAMADOL [Concomitant]
     Active Substance: TRAMADOL
     Dosage: 3 DOSAGE FORM, QD, 1 DOSAGE FORM, TID
     Route: 065
     Dates: start: 20160704
  132. TRAMADOL [Concomitant]
     Active Substance: TRAMADOL
     Dosage: 3 DOSAGE FORM, QD, 1 DOSAGE FORM, TID
     Route: 065
     Dates: start: 20160722
  133. TRAMADOL [Concomitant]
     Active Substance: TRAMADOL
     Dosage: UNK, , UNK1 DOSAGE FORM, TID3 DOSAGE FORM, QD,
     Route: 065
     Dates: start: 20160818
  134. TRAMADOL [Concomitant]
     Active Substance: TRAMADOL
     Dosage: 3 DOSAGE FORM, QD, 1 DOSAGE FORM, TID
     Route: 065
     Dates: start: 20161004
  135. TRAMADOL [Concomitant]
     Active Substance: TRAMADOL
     Dosage: 2 DOSAGE FORM, QD, 1 DOSAGE FORM, BID
     Route: 065
     Dates: start: 20170529
  136. LAMALINE [Concomitant]
     Indication: Product used for unknown indication
     Dosage: UNK
     Route: 065
     Dates: start: 20161208
  137. ESOMEPRAZOLE [Concomitant]
     Active Substance: ESOMEPRAZOLE
     Indication: Product used for unknown indication
     Dosage: 20 MG, QD
     Route: 065

REACTIONS (2)
  - White matter lesion [Unknown]
  - Depression [Unknown]
